FAERS Safety Report 6279945-6 (Version None)
Quarter: 2009Q3

REPORT INFORMATION
  Report Type: 
  Country: None (occurrence: None)
  Receive Date: 20090723
  Receipt Date: 20090218
  Transmission Date: 20100115
  Serious: No
  Sender: FDA-Public Use
  Company Number: US-AMGEN-KDL331033

PATIENT
  Sex: Female
  Weight: 77.6 kg

DRUGS (17)
  1. PROCRIT [Suspect]
     Indication: MYELODYSPLASTIC SYNDROME
     Route: 058
     Dates: start: 20070104, end: 20080601
  2. TRICOR [Concomitant]
  3. AVAPRO [Concomitant]
  4. DIGOXIN [Concomitant]
  5. GLUCOTROL [Concomitant]
  6. COREG [Concomitant]
  7. CLONIDINE [Concomitant]
  8. ZETIA [Concomitant]
  9. CRESTOR [Concomitant]
  10. PLAVIX [Concomitant]
  11. LANTUS [Concomitant]
  12. SYNTHROID [Concomitant]
  13. FUROSEMIDE [Concomitant]
  14. JANUVIA [Concomitant]
  15. FOLIC ACID [Concomitant]
  16. ASPIRIN [Concomitant]
  17. METFORMIN HCL [Concomitant]

REACTIONS (1)
  - ALOPECIA [None]
